FAERS Safety Report 15061896 (Version 1)
Quarter: 2018Q2

REPORT INFORMATION
  Report Type: Spontaneous
  Country: CH (occurrence: CH)
  Receive Date: 20180625
  Receipt Date: 20180625
  Transmission Date: 20180711
  Serious: Yes (Other)
  Sender: FDA-Public Use
  Company Number: CH-NOVOPROD-606609

PATIENT
  Sex: Female
  Weight: .86 kg

DRUGS (10)
  1. URSOFALK [Suspect]
     Active Substance: URSODIOL
     Indication: CHOLESTASIS OF PREGNANCY
     Dosage: UNK
     Route: 064
     Dates: start: 201802, end: 20180227
  2. CORGARD [Suspect]
     Active Substance: NADOLOL
     Dosage: 200 MG, TID
     Route: 064
     Dates: start: 20180206, end: 20180227
  3. EUTHYROX [Suspect]
     Active Substance: LEVOTHYROXINE SODIUM
     Dosage: 0.125 MG, QD
     Route: 064
     Dates: start: 201711, end: 20180227
  4. FERINJECT [Suspect]
     Active Substance: FERRIC CARBOXYMALTOSE
     Indication: IRON DEFICIENCY
     Dosage: UNK
     Route: 064
     Dates: start: 20180110, end: 20180119
  5. ISONIAZIDE [Suspect]
     Active Substance: ISONIAZID
     Indication: PULMONARY TUBERCULOSIS
     Dosage: UNK
     Route: 064
     Dates: start: 20171130, end: 20180206
  6. CORGARD [Suspect]
     Active Substance: NADOLOL
     Indication: CARDIAC HYPERTROPHY
     Dosage: 80 MG, BID
     Route: 064
     Dates: start: 20170812
  7. EUTHYROX [Suspect]
     Active Substance: LEVOTHYROXINE SODIUM
     Indication: AUTOIMMUNE THYROIDITIS
     Dosage: 0.12 MG, QD
     Route: 064
  8. NEXIUM [Suspect]
     Active Substance: ESOMEPRAZOLE MAGNESIUM
     Indication: PRODUCT USED FOR UNKNOWN INDICATION
     Dosage: UNK
     Route: 064
     Dates: end: 20180206
  9. NOVORAPID [Suspect]
     Active Substance: INSULIN ASPART
     Indication: GESTATIONAL DIABETES
     Dosage: UNK
     Route: 064
     Dates: start: 20180222, end: 20180227
  10. ISOPHANE INSULIN [Suspect]
     Active Substance: INSULIN NOS
     Indication: GESTATIONAL DIABETES
     Dosage: UNK
     Route: 064
     Dates: start: 20180215, end: 20180227

REACTIONS (6)
  - Premature baby [Recovered/Resolved]
  - Bradypnoea [Recovered/Resolved]
  - Hyperbilirubinaemia neonatal [Recovered/Resolved]
  - Foetal exposure during pregnancy [Recovered/Resolved]
  - Intraventricular haemorrhage neonatal [Unknown]
  - Neonatal respiratory distress syndrome [Recovered/Resolved]

NARRATIVE: CASE EVENT DATE: 20170812
